FAERS Safety Report 7071758-0 (Version None)
Quarter: 2010Q4

REPORT INFORMATION
  Report Type: 
  Country: None (occurrence: None)
  Receive Date: 20101029
  Receipt Date: 20091016
  Transmission Date: 20110411
  Serious: No
  Sender: FDA-Public Use
  Company Number: A0812203A

PATIENT
  Age: 68 Year
  Sex: Female

DRUGS (10)
  1. ADVAIR DISKUS 100/50 [Suspect]
     Indication: ASTHMA
     Dosage: 1PUFF TWICE PER DAY
     Route: 055
     Dates: start: 20040101
  2. SPIRIVA [Concomitant]
  3. JANUMET [Concomitant]
  4. CADUET [Concomitant]
  5. KLONOPIN [Concomitant]
  6. JANUMET [Concomitant]
  7. SINGULAIR [Concomitant]
  8. ALLEGRA [Concomitant]
  9. CELEBREX [Concomitant]
  10. PROZAC [Concomitant]

REACTIONS (2)
  - DERMATITIS ACNEIFORM [None]
  - RASH GENERALISED [None]
